FAERS Safety Report 9311851 (Version 1)
Quarter: 2013Q2

REPORT INFORMATION
  Report Type: Report from Study
  Country: BR (occurrence: BR)
  Receive Date: 20130528
  Receipt Date: 20130528
  Transmission Date: 20140414
  Serious: Yes (Other)
  Sender: FDA-Public Use
  Company Number: PHHY2013BR052939

PATIENT
  Sex: Female
  Weight: 70 kg

DRUGS (5)
  1. DIOVAN AMLO FIX [Suspect]
     Indication: HYPERTENSION
     Dosage: 1 DF(160/5 MG), DAILY
     Route: 048
  2. ATENOLOL [Concomitant]
     Indication: CARDIAC DISORDER
     Dosage: 50 MG, DAILY
     Route: 048
  3. VICOG [Concomitant]
     Indication: MEMORY IMPAIRMENT
     Dosage: 5 MG, DAILY
     Route: 048
  4. VICOG [Concomitant]
     Indication: NERVOUS SYSTEM DISORDER
  5. RIVOTRIL [Concomitant]
     Indication: NIGHTMARE
     Dosage: 0.5 DF(2 MG), DAILY
     Route: 048

REACTIONS (1)
  - Breast cancer [Recovered/Resolved]
